FAERS Safety Report 8901998 (Version 2)
Quarter: 2014Q4

REPORT INFORMATION
  Report Type: Spontaneous
  Country: US (occurrence: US)
  Receive Date: 20121109
  Receipt Date: 20141011
  Transmission Date: 20150529
  Serious: No
  Sender: FDA-Public Use
  Company Number: US-ASTRAZENECA-2012SE81729

PATIENT
  Age: 58 Year
  Sex: Male
  Weight: 95.3 kg

DRUGS (5)
  1. UNKNOWN OVER THE COUNTER [Concomitant]
     Indication: SINUS DISORDER
  2. UNKNOWN OVER THE COUNTER [Concomitant]
     Indication: INCREASED UPPER AIRWAY SECRETION
  3. NEXIUM [Suspect]
     Active Substance: ESOMEPRAZOLE MAGNESIUM
     Indication: GASTROOESOPHAGEAL REFLUX DISEASE
     Route: 048
  4. RHINOCORT AQUA [Suspect]
     Active Substance: BUDESONIDE
     Route: 045
  5. NEXIUM [Suspect]
     Active Substance: ESOMEPRAZOLE MAGNESIUM
     Indication: GASTROOESOPHAGEAL REFLUX DISEASE
     Route: 048
     Dates: start: 2013

REACTIONS (3)
  - Abdominal pain [Unknown]
  - Drug dose omission [Not Recovered/Not Resolved]
  - Multiple allergies [Unknown]

NARRATIVE: CASE EVENT DATE: 20140912
